FAERS Safety Report 11182850 (Version 1)
Quarter: 2015Q2

REPORT INFORMATION
  Report Type: Spontaneous
  Country: US (occurrence: US)
  Receive Date: 20150611
  Receipt Date: 20150611
  Transmission Date: 20150821
  Serious: Yes (Hospitalization)
  Sender: FDA-Public Use
  Company Number: US-CELGENE-USA-2015061025

PATIENT
  Sex: Female

DRUGS (1)
  1. THALOMID [Suspect]
     Active Substance: THALIDOMIDE
     Indication: AMYLOIDOSIS
     Dosage: 100 MILLIGRAM
     Route: 048
     Dates: start: 20090206

REACTIONS (1)
  - Internal haemorrhage [Not Recovered/Not Resolved]
